FAERS Safety Report 19955366 (Version 1)
Quarter: 2021Q4

REPORT INFORMATION
  Report Type: Spontaneous
  Country: US (occurrence: US)
  Receive Date: 20211014
  Receipt Date: 20211014
  Transmission Date: 20220303
  Serious: Yes (Other)
  Sender: FDA-Public Use
  Company Number: US-BRISTOL-MYERS SQUIBB COMPANY-BMS-2021-106137

PATIENT
  Age: 71 Year
  Sex: Female

DRUGS (4)
  1. NIVOLUMAB [Suspect]
     Active Substance: NIVOLUMAB
     Indication: Ovarian cancer metastatic
     Dosage: UNKNOWN INITIAL DOSING
     Route: 065
  2. NIVOLUMAB [Suspect]
     Active Substance: NIVOLUMAB
     Dosage: 240 MG Q2WKS/ 480 MG Q4WKS
     Route: 065
  3. NIVOLUMAB [Suspect]
     Active Substance: NIVOLUMAB
     Dosage: 3 MILLIGRAM/KILOGRAM
     Route: 065
  4. IPILIMUMAB [Suspect]
     Active Substance: IPILIMUMAB
     Indication: Ovarian cancer metastatic
     Dosage: 1 MILLIGRAM/KILOGRAM
     Route: 065

REACTIONS (9)
  - Immune-mediated hypothyroidism [Unknown]
  - Immune thrombocytopenia [Unknown]
  - Condition aggravated [Unknown]
  - Arthritis [Unknown]
  - Immune-mediated dermatitis [Unknown]
  - Dry mouth [Recovering/Resolving]
  - Anaemia [Unknown]
  - Dry eye [Unknown]
  - Intentional product use issue [Unknown]
